FAERS Safety Report 19642707 (Version 1)
Quarter: 2021Q3

REPORT INFORMATION
  Report Type: Report from Study
  Country: US (occurrence: US)
  Receive Date: 20210730
  Receipt Date: 20210730
  Transmission Date: 20211014
  Serious: Yes (Other)
  Sender: FDA-Public Use
  Company Number: US-TEVA-2021-US-1936821

PATIENT
  Age: 47 Year
  Sex: Female

DRUGS (2)
  1. COPAXONE [Suspect]
     Active Substance: GLATIRAMER ACETATE
     Dates: start: 20210719
  2. COPAXONE [Suspect]
     Active Substance: GLATIRAMER ACETATE
     Dates: start: 20150818

REACTIONS (10)
  - Feeling hot [Unknown]
  - Fatigue [Unknown]
  - Scleroderma [Unknown]
  - Rash [Unknown]
  - Blood test abnormal [Unknown]
  - Peripheral swelling [Unknown]
  - Injection site pain [Recovered/Resolved]
  - Skin hypertrophy [Unknown]
  - Skin induration [Unknown]
  - Injection site swelling [Recovered/Resolved]

NARRATIVE: CASE EVENT DATE: 202107
